FAERS Safety Report 7074718-9 (Version None)
Quarter: 2010Q4

REPORT INFORMATION
  Report Type: 
  Country: None (occurrence: None)
  Receive Date: 20101029
  Receipt Date: 20101018
  Transmission Date: 20110411
  Serious: Yes (Death, Hospitalization)
  Sender: FDA-Public Use
  Company Number: JP-AMGEN-KDC442031

PATIENT

DRUGS (4)
  1. PANITUMUMAB [Suspect]
     Indication: COLORECTAL CANCER
     Dosage: 6 MG/KG, Q2WK
     Route: 041
     Dates: start: 20100706, end: 20100803
  2. CETUXIMAB [Suspect]
     Indication: COLORECTAL CANCER
     Dosage: UNK UNK, UNK
     Route: 041
     Dates: start: 20100501, end: 20100601
  3. PROMAC D [Concomitant]
     Dosage: UNK UNK, UNK
     Route: 048
  4. PROMAC D [Concomitant]
     Route: 048

REACTIONS (5)
  - CHOLESTASIS [None]
  - COLORECTAL CANCER [None]
  - DERMATITIS ACNEIFORM [None]
  - HEPATIC FUNCTION ABNORMAL [None]
  - PLEURAL EFFUSION [None]
